FAERS Safety Report 25628228 (Version 1)
Quarter: 2025Q3

REPORT INFORMATION
  Report Type: Report from Study
  Country: US (occurrence: US)
  Receive Date: 20250731
  Receipt Date: 20250731
  Transmission Date: 20251021
  Serious: Yes (Other)
  Sender: MERCK SHARP & DOHME LLC
  Company Number: US-009507513-2281357

PATIENT
  Age: 59 Year
  Sex: Female
  Weight: 64.9 kg

DRUGS (17)
  1. WINREVAIR [Suspect]
     Active Substance: SOTATERCEPT-CSRK
     Indication: Pulmonary arterial hypertension
     Route: 058
     Dates: start: 202408
  2. WINREVAIR [Suspect]
     Active Substance: SOTATERCEPT-CSRK
  3. WINREVAIR [Suspect]
     Active Substance: SOTATERCEPT-CSRK
  4. WINREVAIR [Suspect]
     Active Substance: SOTATERCEPT-CSRK
  5. OMEPRAZOLE [Concomitant]
     Active Substance: OMEPRAZOLE
  6. LEVOTHYROXINE SODIUM [Concomitant]
     Active Substance: LEVOTHYROXINE SODIUM
  7. MELATONIN [Concomitant]
     Active Substance: MELATONIN
  8. OFEV [Concomitant]
     Active Substance: NINTEDANIB
  9. JARDIANCE [Concomitant]
     Active Substance: EMPAGLIFLOZIN
  10. ACTEMRA [Concomitant]
     Active Substance: TOCILIZUMAB
  11. ATORVASTATIN CALCIUM [Concomitant]
     Active Substance: ATORVASTATIN CALCIUM
  12. SILDENAFIL CITRATE [Concomitant]
     Active Substance: SILDENAFIL CITRATE
  13. TRAMADOL HCL [Concomitant]
     Active Substance: TRAMADOL HYDROCHLORIDE
  14. OXYGEN [Concomitant]
     Active Substance: OXYGEN
  15. PREDNISONE [Concomitant]
     Active Substance: PREDNISONE
  16. TYVASO [Concomitant]
     Active Substance: TREPROSTINIL
  17. TRIAMCINOLONE ACETONIDE [Concomitant]
     Active Substance: TRIAMCINOLONE ACETONIDE

REACTIONS (3)
  - Rectal haemorrhage [Unknown]
  - Diarrhoea haemorrhagic [Unknown]
  - Skin haemorrhage [Unknown]

NARRATIVE: CASE EVENT DATE: 20250417
